FAERS Safety Report 9900725 (Version 2)
Quarter: 2014Q1

REPORT INFORMATION
  Report Type: Spontaneous
  Country: US (occurrence: US)
  Receive Date: 20140217
  Receipt Date: 20140225
  Transmission Date: 20141002
  Serious: Yes (Hospitalization, Other)
  Sender: FDA-Public Use
  Company Number: US-009507513-1402USA006885

PATIENT
  Age: 25 Year
  Sex: Female
  Weight: 82.99 kg

DRUGS (1)
  1. NEXPLANON [Suspect]
     Indication: CONTRACEPTION
     Dosage: 1 DF, UNK
     Route: 059
     Dates: start: 20131213, end: 20140117

REACTIONS (2)
  - Loss of consciousness [Recovered/Resolved]
  - Headache [Recovered/Resolved]
